FAERS Safety Report 12208466 (Version 2)
Quarter: 2016Q2

REPORT INFORMATION
  Report Type: Report from Study
  Country: US (occurrence: US)
  Receive Date: 20160324
  Receipt Date: 20160526
  Transmission Date: 20160815
  Serious: Yes (Other)
  Sender: FDA-Public Use
  Company Number: US-TEVA-645728USA

PATIENT
  Age: 31 Year
  Sex: Male

DRUGS (8)
  1. ZYPREXA [Concomitant]
     Active Substance: OLANZAPINE
  2. COGENTIN [Concomitant]
     Active Substance: BENZTROPINE MESYLATE
  3. METOPROLOL. [Concomitant]
     Active Substance: METOPROLOL
  4. MAGNESIUM HYDROXIDE. [Concomitant]
     Active Substance: MAGNESIUM HYDROXIDE
  5. LEVOTHYROXINE. [Concomitant]
     Active Substance: LEVOTHYROXINE
  6. LACTULOSE. [Concomitant]
     Active Substance: LACTULOSE
  7. CLOZAPINE. [Suspect]
     Active Substance: CLOZAPINE
     Route: 048
  8. HALDOL [Concomitant]
     Active Substance: HALOPERIDOL

REACTIONS (1)
  - Granulocytopenia [Recovered/Resolved]

NARRATIVE: CASE EVENT DATE: 20160315
